FAERS Safety Report 11109093 (Version 1)
Quarter: 2015Q2

REPORT INFORMATION
  Report Type: Spontaneous
  Country: JP (occurrence: None)
  Receive Date: 20150511
  Receipt Date: 20150511
  Transmission Date: 20150821
  Serious: Yes (Other)
  Sender: FDA-Public Use
  Company Number: KAD201505-001027

PATIENT
  Age: 67 Year
  Sex: Female

DRUGS (5)
  1. PEGYLATED INTERFERON (PEGYLATED INTERFERON) [Suspect]
     Active Substance: PEGINTERFERON ALFA-2A OR PEGINTERFERON ALFA-2B
     Indication: HEPATITIS C
  2. RIBAVIRIN (RIBAVIRIN) [Suspect]
     Active Substance: RIBAVIRIN
     Indication: HEPATITIS C
  3. MYCOPHENOLATE MOFETIL. [Concomitant]
     Active Substance: MYCOPHENOLATE MOFETIL
  4. TACROLIMUS. [Concomitant]
     Active Substance: TACROLIMUS
  5. PREDNISOLONE. [Concomitant]
     Active Substance: PREDNISOLONE

REACTIONS (6)
  - Biliary tract disorder [None]
  - Atrophy [None]
  - Hepatic failure [None]
  - Liver transplant rejection [None]
  - Cholestasis [None]
  - Infection [None]
